FAERS Safety Report 8866058 (Version 2)
Quarter: 2013Q1

REPORT INFORMATION
  Report Type: Report from Study
  Country: US (occurrence: US)
  Receive Date: 20121025
  Receipt Date: 20130218
  Transmission Date: 20140127
  Serious: Yes (Death, Hospitalization, Other)
  Sender: FDA-Public Use
  Company Number: US-ABBOTT-12P-163-0997736-00

PATIENT
  Age: 59 Year
  Sex: Female

DRUGS (3)
  1. HUMIRA PEN [Suspect]
     Indication: CROHN^S DISEASE
     Dates: start: 20120905, end: 20120905
  2. HUMIRA PEN [Suspect]
     Route: 058
     Dates: start: 20120918, end: 20120918
  3. HUMIRA PEN [Suspect]
     Dates: start: 20121003

REACTIONS (4)
  - Sepsis [Fatal]
  - Thrombosis [Recovered/Resolved]
  - Crohn^s disease [Unknown]
  - Incorrect dose administered [Unknown]
